FAERS Safety Report 24557388 (Version 3)
Quarter: 2024Q4

REPORT INFORMATION
  Report Type: Report from Study
  Country: US (occurrence: US)
  Receive Date: 20241028
  Receipt Date: 20241121
  Transmission Date: 20250115
  Serious: Yes (Other)
  Sender: ABBVIE
  Company Number: US-ABBVIE-5976056

PATIENT
  Age: 83 Year
  Sex: Female
  Weight: 51.709 kg

DRUGS (4)
  1. CREON [Suspect]
     Active Substance: PANCRELIPASE AMYLASE\PANCRELIPASE LIPASE\PANCRELIPASE PROTEASE
     Indication: Pancreatic failure
     Dosage: FORM STRENGTH: 36000 UNIT
     Route: 048
     Dates: start: 2022, end: 202409
  2. VITAMIN D [Concomitant]
     Active Substance: VITAMIN D NOS
     Indication: Product used for unknown indication
  3. ZYRTEC [Concomitant]
     Active Substance: CETIRIZINE HYDROCHLORIDE
     Indication: Seasonal allergy
  4. VITAMIN C [Concomitant]
     Active Substance: ASCORBIC ACID
     Indication: Product used for unknown indication

REACTIONS (8)
  - Cardiac failure congestive [Recovering/Resolving]
  - Fall [Recovered/Resolved]
  - Vomiting [Recovering/Resolving]
  - Stress [Recovering/Resolving]
  - Myocardial infarction [Recovering/Resolving]
  - Diarrhoea [Recovering/Resolving]
  - Pelvic fracture [Recovered/Resolved]
  - Pain [Recovered/Resolved]

NARRATIVE: CASE EVENT DATE: 20230101
